FAERS Safety Report 10622977 (Version 1)
Quarter: 2014Q4

REPORT INFORMATION
  Report Type: Spontaneous
  Country: US (occurrence: US)
  Receive Date: 20141203
  Receipt Date: 20141203
  Transmission Date: 20150529
  Serious: No
  Sender: FDA-Public Use
  Company Number: US-ASTRAZENECA-2014SE92082

PATIENT
  Sex: Female

DRUGS (2)
  1. NEXIUM 24HR [Suspect]
     Active Substance: ESOMEPRAZOLE MAGNESIUM
     Route: 048
  2. WARFARIN [Suspect]
     Active Substance: WARFARIN

REACTIONS (3)
  - Gastrooesophageal reflux disease [Unknown]
  - Somnolence [Unknown]
  - Drug ineffective [Unknown]
